FAERS Safety Report 6546703-4 (Version None)
Quarter: 2010Q1

REPORT INFORMATION
  Report Type: 
  Country: None (occurrence: None)
  Receive Date: 20100122
  Receipt Date: 20100112
  Transmission Date: 20100710
  Serious: Yes (Death, Life-Threatening, Hospitalization, Disabling)
  Sender: FDA-Public Use
  Company Number: JP-PFIZER INC-2009269585

PATIENT
  Age: 58 Year
  Sex: Male
  Weight: 56.5 kg

DRUGS (4)
  1. SUNITINIB MALATE [Suspect]
     Indication: RENAL CELL CARCINOMA
     Dosage: 50 MG, 1X/DAY
     Route: 048
     Dates: start: 20090422, end: 20090621
  2. OXYCONTIN [Concomitant]
     Route: 048
     Dates: end: 20090512
  3. LOXONIN [Concomitant]
     Route: 048
     Dates: start: 20090426, end: 20090512
  4. GASTER [Concomitant]
     Route: 048
     Dates: start: 20090426, end: 20090512

REACTIONS (7)
  - DEATH [None]
  - HAEMATOCRIT DECREASED [None]
  - HAEMOGLOBIN DECREASED [None]
  - LOSS OF CONSCIOUSNESS [None]
  - MALAISE [None]
  - MOUTH HAEMORRHAGE [None]
  - NAUSEA [None]
